FAERS Safety Report 19894718 (Version 1)
Quarter: 2021Q3

REPORT INFORMATION
  Report Type: Spontaneous
  Country: US (occurrence: US)
  Receive Date: 20210929
  Receipt Date: 20210929
  Transmission Date: 20211014
  Serious: No
  Sender: FDA-Public Use
  Company Number: None

PATIENT
  Age: 71 Year
  Sex: Male
  Weight: 62 kg

DRUGS (1)
  1. CIPROFLOXACIN (CIPROFLOXACIN 500MG TAB,SA) [Suspect]
     Active Substance: CIPROFLOXACIN
     Indication: URINARY TRACT INFECTION
     Route: 048
     Dates: start: 20210716, end: 20210719

REACTIONS (1)
  - Hiccups [None]

NARRATIVE: CASE EVENT DATE: 20210726
